FAERS Safety Report 14902255 (Version 1)
Quarter: 2018Q2

REPORT INFORMATION
  Report Type: Report from Study
  Country: DE (occurrence: DE)
  Receive Date: 20180516
  Receipt Date: 20180516
  Transmission Date: 20180711
  Serious: Yes (Hospitalization, Disabling)
  Sender: FDA-Public Use
  Company Number: DE-PFIZER INC-2018195688

PATIENT
  Age: 41 Year
  Sex: Female
  Weight: 57 kg

DRUGS (4)
  1. DOCETAXEL. [Suspect]
     Active Substance: DOCETAXEL
     Dosage: 169 MG, EVERY 3 WEEKS
     Route: 041
     Dates: start: 20131220, end: 20140403
  2. EPIRUBICIN HCL [Suspect]
     Active Substance: EPIRUBICIN HYDROCHLORIDE
     Dosage: 152 MG, EVERY 3 WEEKS
     Route: 041
     Dates: start: 20140605, end: 20140605
  3. BEVACIZUMAB. [Suspect]
     Active Substance: BEVACIZUMAB
     Dosage: 855 MG, UNK
     Route: 041
     Dates: start: 20131220, end: 20140403
  4. CYCLOPHOSPHAMIDE. [Suspect]
     Active Substance: CYCLOPHOSPHAMIDE
     Dosage: 1014 MG, EVERY 3 WEEKS
     Route: 041
     Dates: start: 20140605, end: 20140605

REACTIONS (2)
  - Febrile neutropenia [Recovered/Resolved]
  - Visual impairment [Recovered/Resolved]

NARRATIVE: CASE EVENT DATE: 20140406
